FAERS Safety Report 15195007 (Version 1)
Quarter: 2018Q3

REPORT INFORMATION
  Report Type: Spontaneous
  Country: US (occurrence: US)
  Receive Date: 20180626
  Receipt Date: 20180626
  Transmission Date: 20181010
  Serious: Yes (Other)
  Sender: FDA-Public Use
  Company Number: None

PATIENT
  Age: 71 Year
  Sex: Female
  Weight: 45 kg

DRUGS (12)
  1. SIMVASTATIN. [Concomitant]
     Active Substance: SIMVASTATIN
  2. CALCIUM [Concomitant]
     Active Substance: CALCIUM
  3. NORTRIPTYLINE [Concomitant]
     Active Substance: NORTRIPTYLINE
  4. VITAMIN C [Concomitant]
     Active Substance: ASCORBIC ACID
  5. LINZESS [Suspect]
     Active Substance: LINACLOTIDE
     Indication: CONSTIPATION
     Dosage: ?          QUANTITY:1 CAPSULE(S);?
     Route: 048
     Dates: start: 20180622, end: 20180625
  6. VITAMIN B [Concomitant]
     Active Substance: VITAMIN B
  7. MAGNESIUM [Concomitant]
     Active Substance: MAGNESIUM
  8. VITAMIN D [Concomitant]
     Active Substance: CHOLECALCIFEROL
  9. LORAZEPAM. [Concomitant]
     Active Substance: LORAZEPAM
  10. FISH OIL [Concomitant]
     Active Substance: FISH OIL
  11. ASPIRIN?81G [Concomitant]
  12. COENZYME Q [Concomitant]

REACTIONS (5)
  - Urticaria [None]
  - Rash pruritic [None]
  - Product formulation issue [None]
  - Rash generalised [None]
  - Product label issue [None]

NARRATIVE: CASE EVENT DATE: 20180625
